FAERS Safety Report 8919097 (Version 1)
Quarter: 2012Q4

REPORT INFORMATION
  Report Type: 
  Country: US (occurrence: US)
  Receive Date: 20121121
  Receipt Date: 20121121
  Transmission Date: 20130627
  Serious: Yes (Hospitalization)
  Sender: FDA-Public Use
  Company Number: US-ELI_LILLY_AND_COMPANY-US201111005823

PATIENT
  Sex: Male

DRUGS (8)
  1. FORTEO [Suspect]
     Indication: OSTEOPOROSIS
     Dosage: 20 ug, qd
     Dates: start: 201108
  2. FORTEO [Suspect]
     Dosage: 20 ug, qd
  3. FORTEO [Suspect]
     Dosage: 20 ug, qd
  4. BABY ASPIRIN [Concomitant]
     Dosage: UNK, qd
  5. VITAMIN D                          /00318501/ [Concomitant]
     Dosage: UNK, qd
  6. PLAVIX [Concomitant]
     Dosage: 75 mg, qd
  7. AMBIEN [Concomitant]
     Dosage: UNK, prn
  8. ALIGN [Concomitant]
     Indication: CONSTIPATION PROPHYLAXIS
     Dosage: UNK, each evening

REACTIONS (2)
  - Cardiac disorder [Recovering/Resolving]
  - Medication error [Unknown]
